FAERS Safety Report 9496643 (Version 2)
Quarter: 2013Q4

REPORT INFORMATION
  Report Type: Report from Study
  Country: FR (occurrence: FR)
  Receive Date: 20130904
  Receipt Date: 20131028
  Transmission Date: 20140711
  Serious: Yes (Hospitalization)
  Sender: FDA-Public Use
  Company Number: FR-ASTELLAS-2013EU007435

PATIENT
  Age: 65 Year
  Sex: Male

DRUGS (10)
  1. ADVAGRAF [Suspect]
     Indication: IMMUNOSUPPRESSION
     Dosage: UNK
     Route: 065
     Dates: start: 20130618
  2. CELLCEPT                           /01275102/ [Concomitant]
     Indication: IMMUNOSUPPRESSION
     Dosage: UNK
     Route: 065
     Dates: start: 20130328
  3. KARDEGIC [Concomitant]
     Dosage: UNK
     Route: 065
     Dates: start: 20130618
  4. PREVISCAN                          /00789001/ [Concomitant]
     Indication: VENOUS THROMBOSIS
     Dosage: UNK
     Route: 065
     Dates: start: 20130528
  5. TAHOR [Concomitant]
     Dosage: UNK
     Route: 065
     Dates: start: 20130528
  6. SELENIUM [Concomitant]
     Indication: STRESS
     Dosage: UNK
     Route: 065
     Dates: start: 20130618
  7. PHOCYTAN [Concomitant]
     Indication: PARENTERAL NUTRITION
     Dosage: UNK
     Route: 065
     Dates: start: 20130618
  8. LASILIX                            /00032601/ [Concomitant]
     Indication: HYPERTENSION
     Dosage: UNK
     Route: 065
     Dates: start: 20130430
  9. DIFFU-K [Concomitant]
     Indication: HYPOKALAEMIA
     Dosage: UNK
     Route: 065
     Dates: start: 20130608
  10. EUPANTOL [Concomitant]
     Indication: GASTROOESOPHAGEAL REFLUX PROPHYLAXIS
     Dosage: UNK
     Route: 065
     Dates: start: 20130627

REACTIONS (4)
  - General physical health deterioration [Recovered/Resolved]
  - Nausea [Recovered/Resolved]
  - Vomiting [Recovered/Resolved]
  - Diarrhoea [Recovered/Resolved]
